FAERS Safety Report 5229563-3 (Version None)
Quarter: 2007Q1

REPORT INFORMATION
  Report Type: 
  Country: None (occurrence: None)
  Receive Date: 20070201
  Receipt Date: 20070105
  Transmission Date: 20070707
  Serious: Yes (Death)
  Sender: FDA-Public Use
  Company Number: 0710001

PATIENT
  Sex: Male

DRUGS (1)
  1. NITISINONE/COMPASS.USE [Suspect]
     Indication: TYROSINAEMIA
     Dosage: 16 MG/DAY A DAY
     Dates: start: 20040301, end: 20060704

REACTIONS (2)
  - HEPATIC NEOPLASM MALIGNANT [None]
  - LIVER TRANSPLANT [None]
